FAERS Safety Report 8143720-8 (Version None)
Quarter: 2012Q1

REPORT INFORMATION
  Report Type: 
  Country: None (occurrence: None)
  Receive Date: 20120217
  Receipt Date: 20120209
  Transmission Date: 20120608
  Serious: Yes (Hospitalization)
  Sender: FDA-Public Use
  Company Number: PE-ASTELLAS-2012US001792

PATIENT
  Sex: Male
  Weight: 61 kg

DRUGS (3)
  1. SORAFENIB [Suspect]
     Indication: HEPATIC NEOPLASM MALIGNANT
     Dosage: 800 MG, UID/QD
     Route: 048
     Dates: start: 20110926, end: 20111006
  2. ERLOTINIB HYDROCHLORIDE [Suspect]
     Indication: HEPATIC NEOPLASM MALIGNANT
     Dosage: 100 MG, UID/QD
     Route: 048
     Dates: start: 20110926, end: 20111006
  3. RANITIDINE [Concomitant]
     Indication: PRODUCT USED FOR UNKNOWN INDICATION
     Dosage: UNK
     Route: 065
     Dates: start: 20111013

REACTIONS (4)
  - HEPATIC CIRRHOSIS [None]
  - OFF LABEL USE [None]
  - ANAEMIA [None]
  - URINARY TRACT INFECTION [None]
